FAERS Safety Report 18477035 (Version 18)
Quarter: 2021Q3

REPORT INFORMATION
  Report Type: Report from Study
  Country: CO (occurrence: CO)
  Receive Date: 20201107
  Receipt Date: 20210715
  Transmission Date: 20211014
  Serious: No
  Sender: FDA-Public Use
  Company Number: CO-TAKEDA-CO202009992

PATIENT
  Age: 22 Year
  Sex: Female
  Weight: 58 kg

DRUGS (16)
  1. ICATIBANT [Suspect]
     Active Substance: ICATIBANT ACETATE
     Dosage: 30 MILLIGRAM PREFILLED SYRINGE,AS REQUIRED, PRN
     Route: 058
     Dates: start: 20200704, end: 20200704
  2. ICATIBANT [Suspect]
     Active Substance: ICATIBANT ACETATE
     Dosage: 30 MILLIGRAM PREFILLED SYRINGE,AS REQUIRED, PRN
     Route: 058
     Dates: start: 20200704, end: 20200704
  3. ICATIBANT [Suspect]
     Active Substance: ICATIBANT ACETATE
     Dosage: 30 MILLIGRAM PREFILLED SYRINGE,AS REQUIRED, PRN
     Route: 058
     Dates: start: 20200704, end: 20200704
  4. ICATIBANT [Suspect]
     Active Substance: ICATIBANT ACETATE
     Indication: HEREDITARY ANGIOEDEMA
     Dosage: 30 MILLIGRAM PREFILLED SYRINGE,AS REQUIRED, PRN
     Route: 058
     Dates: start: 20200201
  5. ICATIBANT [Suspect]
     Active Substance: ICATIBANT ACETATE
     Dosage: 30 MILLIGRAM PREFILLED SYRINGE,AS REQUIRED, PRN
     Route: 058
     Dates: start: 20200309, end: 20200309
  6. ICATIBANT [Suspect]
     Active Substance: ICATIBANT ACETATE
     Dosage: 30 MILLIGRAM, PRN
     Route: 058
     Dates: start: 20200317, end: 20200317
  7. ICATIBANT [Suspect]
     Active Substance: ICATIBANT ACETATE
     Dosage: 30 MILLIGRAM PREFILLED SYRINGE,AS REQUIRED, PRN
     Route: 058
     Dates: start: 20200714, end: 20200715
  8. ICATIBANT [Suspect]
     Active Substance: ICATIBANT ACETATE
     Dosage: 30 MILLIGRAM
     Route: 058
     Dates: start: 20200915
  9. ICATIBANT [Suspect]
     Active Substance: ICATIBANT ACETATE
     Dosage: 30 MILLIGRAM PREFILLED SYRINGE,AS REQUIRED, PRN
     Route: 058
     Dates: start: 20200714, end: 20200715
  10. ICATIBANT [Suspect]
     Active Substance: ICATIBANT ACETATE
     Dosage: 30 MILLIGRAM PREFILLED SYRINGE,AS REQUIRED, PRN
     Route: 058
     Dates: start: 20200704, end: 20200704
  11. ICATIBANT [Suspect]
     Active Substance: ICATIBANT ACETATE
     Dosage: 30 MILLIGRAM PREFILLED SYRINGE,AS REQUIRED, PRN
     Route: 058
     Dates: start: 20200818, end: 20200818
  12. ICATIBANT [Suspect]
     Active Substance: ICATIBANT ACETATE
     Indication: HEREDITARY ANGIOEDEMA
     Dosage: 30 MILLIGRAM PREFILLED SYRINGE,AS REQUIRED, PRN
     Route: 058
     Dates: start: 20200201
  13. ICATIBANT [Suspect]
     Active Substance: ICATIBANT ACETATE
     Dosage: 30 MILLIGRAM PREFILLED SYRINGE,AS REQUIRED, PRN
     Route: 058
     Dates: start: 20200309, end: 20200309
  14. ICATIBANT [Suspect]
     Active Substance: ICATIBANT ACETATE
     Dosage: 30 MILLIGRAM
     Route: 058
     Dates: start: 20200915
  15. ICATIBANT [Suspect]
     Active Substance: ICATIBANT ACETATE
     Dosage: 30 MILLIGRAM, PRN
     Route: 058
     Dates: start: 20200317, end: 20200317
  16. ICATIBANT [Suspect]
     Active Substance: ICATIBANT ACETATE
     Dosage: 30 MILLIGRAM PREFILLED SYRINGE,AS REQUIRED, PRN
     Route: 058
     Dates: start: 20200818, end: 20200818

REACTIONS (3)
  - Exposure during pregnancy [Unknown]
  - Product availability issue [Unknown]
  - Abdominal pain [Recovered/Resolved]

NARRATIVE: CASE EVENT DATE: 20200622
